FAERS Safety Report 9202244 (Version 1)
Quarter: 2013Q2

REPORT INFORMATION
  Report Type: Spontaneous
  Country: NL (occurrence: NL)
  Receive Date: 20130401
  Receipt Date: 20130401
  Transmission Date: 20140414
  Serious: Yes (Hospitalization)
  Sender: FDA-Public Use
  Company Number: NL-AMGEN-NLDSP2013021467

PATIENT
  Age: 66 Year
  Sex: Female

DRUGS (13)
  1. NEULASTA [Suspect]
     Indication: PRODUCT USED FOR UNKNOWN INDICATION
     Dosage: 6 MG, Q3WK
     Route: 058
     Dates: start: 20130302
  2. CHEMOTHERAPEUTICS [Concomitant]
     Dosage: UNK
  3. PERINDOPRIL [Concomitant]
     Dosage: 1 X 1
  4. DEXAMETHASON                       /00016001/ [Concomitant]
     Dosage: 20 MG, UNK
  5. ENDOXAN /00021101/ [Concomitant]
     Dosage: ENDOXAN INJPDR FL 200 MG
  6. DOXORUBICINE                       /00330901/ [Concomitant]
     Dosage: 50 MG=25ML
  7. ACETYLSALICYLZUUR [Concomitant]
     Dosage: 80 MG, DIS
  8. PANTOPRAZOL ACTAVIS [Concomitant]
     Dosage: 40 MG, MAR
  9. SIMVASTATINE ACTAVIS [Concomitant]
  10. METOPROLOLSUCCINAAT SANDOZ [Concomitant]
     Dosage: METOPROL SUC SDZ RET 25 TAB
  11. AMLODIPINE ACTAVIS [Concomitant]
     Dosage: 5 MG, UNK
  12. GRANISETRON [Concomitant]
     Dosage: 3 MG=3 ML AMP
  13. DOCETAXEL [Concomitant]
     Dosage: 160 MG=16 ML

REACTIONS (2)
  - Chest pain [Unknown]
  - Pyrexia [Unknown]
